FAERS Safety Report 18437296 (Version 1)
Quarter: 2020Q4

REPORT INFORMATION
  Report Type: Spontaneous
  Country: US (occurrence: US)
  Receive Date: 20201028
  Receipt Date: 20201028
  Transmission Date: 20210114
  Serious: Yes (Death, Hospitalization, Other)
  Sender: FDA-Public Use
  Company Number: US-SA-2020SA299512

PATIENT

DRUGS (8)
  1. METHOTREXATE. [Interacting]
     Active Substance: METHOTREXATE
     Indication: RHEUMATOID ARTHRITIS
     Dosage: 7.5 MG, QW
     Route: 048
     Dates: start: 198307
  2. HYDROCHLOROTHIAZIDE. [Interacting]
     Active Substance: HYDROCHLOROTHIAZIDE
  3. SULINDAC. [Interacting]
     Active Substance: SULINDAC
  4. SUCRALFATE. [Suspect]
     Active Substance: SUCRALFATE
  5. DIPHENHYDRAMINE. [Suspect]
     Active Substance: DIPHENHYDRAMINE
  6. PROPRANOLOL HYDROCHLORIDE. [Suspect]
     Active Substance: PROPRANOLOL HYDROCHLORIDE
  7. ACETYLSALICYLIC ACID [Interacting]
     Active Substance: ASPIRIN
  8. DIMETAPP [BROMPHENIRAMINE MALEATE;PHENYLEPHRINE HYDROCHLORIDE] [Suspect]
     Active Substance: BROMPHENIRAMINE MALEATE\PHENYLEPHRINE HYDROCHLORIDE

REACTIONS (16)
  - Thrombocytopenia [Fatal]
  - Escherichia sepsis [Fatal]
  - Rash macular [Unknown]
  - Drug interaction [Unknown]
  - Myelosuppression [Fatal]
  - Conjunctival haemorrhage [Unknown]
  - Bone marrow failure [Fatal]
  - Toxicity to various agents [Fatal]
  - Azotaemia [Fatal]
  - Oropharyngeal pain [Unknown]
  - Epistaxis [Unknown]
  - Pancytopenia [Fatal]
  - Oliguria [Fatal]
  - Idiosyncratic drug reaction [Fatal]
  - Tongue ulceration [Unknown]
  - Melaena [Unknown]

NARRATIVE: CASE EVENT DATE: 1983
